FAERS Safety Report 6856587-2 (Version None)
Quarter: 2010Q3

REPORT INFORMATION
  Report Type: 
  Country: None (occurrence: None)
  Receive Date: 20100719
  Receipt Date: 20100709
  Transmission Date: 20110219
  Serious: Yes (Hospitalization)
  Sender: FDA-Public Use
  Company Number: SE-PFIZER INC-2010085665

PATIENT
  Age: 71 Year
  Sex: Male

DRUGS (11)
  1. ALFADIL [Suspect]
     Indication: ESSENTIAL HYPERTENSION
     Dosage: 4 MG, 1X/DAY
     Route: 048
     Dates: start: 20100502, end: 20100514
  2. KALCIPOS-D [Concomitant]
     Dosage: UNK
  3. SPIRIVA [Concomitant]
     Dosage: 18 UG, UNK
  4. METHOTREXATE [Concomitant]
     Dosage: 2.5 MG, UNK
  5. FOLACIN [Concomitant]
     Dosage: 5 MG, UNK
  6. ACETAMINOPHEN [Concomitant]
     Dosage: UNK
  7. NITROMEX [Concomitant]
     Dosage: 0.25 MG, UNK
  8. TROMBYL [Concomitant]
     Dosage: 75 MG, UNK
  9. OMEPRAZOLE [Concomitant]
     Dosage: 20 MG, UNK
  10. PREDNISOLON [Concomitant]
     Dosage: 5 MG, UNK
  11. AMLODIPINE [Concomitant]
     Dosage: 5 MG, UNK

REACTIONS (2)
  - ANGIOEDEMA [None]
  - TONGUE OEDEMA [None]
